FAERS Safety Report 16942460 (Version 1)
Quarter: 2019Q4

REPORT INFORMATION
  Report Type: Spontaneous
  Country: US (occurrence: US)
  Receive Date: 20191021
  Receipt Date: 20191021
  Transmission Date: 20200122
  Serious: No
  Sender: FDA-Public Use
  Company Number: US-SA-2019SA283797

PATIENT
  Age: 43 Year
  Sex: Female

DRUGS (3)
  1. BIMATOPROST. [Concomitant]
     Active Substance: BIMATOPROST
  2. SYNTHROID [Concomitant]
     Active Substance: LEVOTHYROXINE SODIUM
  3. DUPIXENT [Suspect]
     Active Substance: DUPILUMAB
     Indication: NEURODERMATITIS
     Dosage: 300 MG, QOW
     Route: 058
     Dates: start: 20190813

REACTIONS (1)
  - Arthralgia [Not Recovered/Not Resolved]
